FAERS Safety Report 6393049-3 (Version None)
Quarter: 2009Q4

REPORT INFORMATION
  Report Type: 
  Country: None (occurrence: None)
  Receive Date: 20091008
  Receipt Date: 20070604
  Transmission Date: 20100525
  Serious: Yes (Other)
  Sender: FDA-Public Use
  Company Number: US-ASTRAZENECA-2006UW24021

PATIENT
  Age: 15924 Day
  Sex: Female
  Weight: 120.2 kg

DRUGS (11)
  1. SEROQUEL [Suspect]
     Indication: DEPRESSION
     Dosage: 50 - 200 MG
     Route: 048
     Dates: start: 20020822
  2. SEROQUEL [Suspect]
     Indication: SCHIZOPHRENIA
     Dosage: 50 - 200 MG
     Route: 048
     Dates: start: 20020822
  3. ZYPREXA [Concomitant]
  4. COGENTIN [Concomitant]
     Dates: start: 20020822
  5. ZOLOFT [Concomitant]
     Indication: PANIC DISORDER
     Dates: start: 19950117
  6. ZOLOFT [Concomitant]
     Indication: POST-TRAUMATIC STRESS DISORDER
     Dates: start: 19950117
  7. ZOLOFT [Concomitant]
     Indication: DEPRESSION
     Dates: start: 19950117
  8. PAXIL [Concomitant]
     Indication: BORDERLINE PERSONALITY DISORDER
     Dosage: 15 - 30 MG
     Dates: start: 19970101
  9. PAXIL [Concomitant]
     Indication: POST-TRAUMATIC STRESS DISORDER
     Dosage: 15 - 30 MG
     Dates: start: 19970101
  10. PAXIL [Concomitant]
     Indication: MAJOR DEPRESSION
     Dosage: 15 - 30 MG
     Dates: start: 19970101
  11. TRILAFON [Concomitant]
     Dosage: 4 MG BID AND 12 MG AT HS
     Dates: start: 20020822

REACTIONS (5)
  - CARDIAC DISORDER [None]
  - CARDIAC FAILURE CONGESTIVE [None]
  - DIABETES MELLITUS [None]
  - DIABETES MELLITUS INADEQUATE CONTROL [None]
  - DIABETIC NEUROPATHY [None]
